FAERS Safety Report 4635405-7 (Version None)
Quarter: 2005Q2

REPORT INFORMATION
  Report Type: 
  Country: None (occurrence: None)
  Receive Date: 20050414
  Receipt Date: 20050401
  Transmission Date: 20051028
  Serious: Yes (Life-Threatening, Hospitalization)
  Sender: FDA-Public Use
  Company Number: 2005054149

PATIENT
  Age: 47 Year
  Sex: Male

DRUGS (11)
  1. ZYVOX [Suspect]
     Indication: STAPHYLOCOCCAL INFECTION
     Dosage: 1200 MG (600 MG, 2 IN 1D), INTRAVENOUS
     Route: 042
     Dates: start: 20041017, end: 20041020
  2. DOXAZOSIN (DOXAZOSIN) [Concomitant]
  3. PROCYCLIDINE HYDROCHLORIDE 2MG TAB [Concomitant]
  4. ATENOLOL [Concomitant]
  5. RIFAMPICIN [Concomitant]
  6. FENTANYL [Concomitant]
  7. AMISULPRIDE (AMISULPRIDE) [Concomitant]
  8. OMEPRAZOLE [Concomitant]
  9. PANTOPRAZOLE (PANTOPRAZOLE) [Concomitant]
  10. ZOPLICONE (ZOPICLONE) [Concomitant]
  11. HALOPERIDOL [Concomitant]

REACTIONS (2)
  - BLOOD PRESSURE SYSTOLIC INCREASED [None]
  - DRUG INTERACTION [None]
